APPROVED DRUG PRODUCT: PHYSIOSOL IN PLASTIC CONTAINER
Active Ingredient: MAGNESIUM CHLORIDE; POTASSIUM CHLORIDE; SODIUM ACETATE; SODIUM CHLORIDE; SODIUM GLUCONATE
Strength: 30MG/100ML;37MG/100ML;222MG/100ML;526MG/100ML;502MG/100ML
Dosage Form/Route: SOLUTION;IRRIGATION
Application: N017637 | Product #002
Applicant: OTSUKA ICU MEDICAL LLC
Approved: Jul 8, 1982 | RLD: No | RS: No | Type: RX